FAERS Safety Report 17868699 (Version 1)
Quarter: 2020Q2

REPORT INFORMATION
  Report Type: Spontaneous
  Country: US (occurrence: US)
  Receive Date: 20200606
  Receipt Date: 20200606
  Transmission Date: 20200714
  Serious: Yes (Hospitalization)
  Sender: FDA-Public Use
  Company Number: None

PATIENT
  Age: 69 Year
  Sex: Male
  Weight: 92 kg

DRUGS (6)
  1. IV COVID-19 CONVALESCENT PLASMA [Concomitant]
     Dates: start: 20200602, end: 20200602
  2. IV PANTOPRAZOLE 40MG [Concomitant]
     Dates: start: 20200602, end: 20200602
  3. IV LACTATED RINGERS [Concomitant]
     Dates: start: 20200602, end: 20200602
  4. HUMALOG SLIDING SCALE INSULIN [Concomitant]
     Dates: start: 20200602, end: 20200602
  5. REMDESIVIR INJECTION [Suspect]
     Active Substance: REMDESIVIR
     Indication: COVID-19
     Dosage: ?          OTHER FREQUENCY:ONCE;?
     Route: 042
     Dates: start: 20200602, end: 20200602
  6. PO ACETAMINOPHEN 650MG [Concomitant]
     Dates: start: 20200602, end: 20200602

REACTIONS (8)
  - Pyrexia [None]
  - Blood pressure increased [None]
  - Dyspnoea [None]
  - Chills [None]
  - Leukocytosis [None]
  - Infusion related reaction [None]
  - Heart rate increased [None]
  - Chest X-ray abnormal [None]

NARRATIVE: CASE EVENT DATE: 20200602
